FAERS Safety Report 4553811-6 (Version None)
Quarter: 2005Q1

REPORT INFORMATION
  Report Type: 
  Country: None (occurrence: None)
  Receive Date: 20050114
  Receipt Date: 20050114
  Transmission Date: 20050727
  Serious: Yes (Life-Threatening, Hospitalization)
  Sender: FDA-Public Use
  Company Number: None

PATIENT
  Age: 37 Year
  Sex: Male
  Weight: 104.3273 kg

DRUGS (2)
  1. CELEBREX [Suspect]
     Indication: MUSCLE SPASMS
     Dosage: 2 TIMES DAY   ORAL
     Route: 048
  2. CELEBREX [Suspect]
     Indication: SPINAL COLUMN STENOSIS
     Dosage: 2 TIMES DAY   ORAL
     Route: 048

REACTIONS (2)
  - CARDIAC DISORDER [None]
  - MYOCARDIAL INFARCTION [None]
